FAERS Safety Report 23129069 (Version 1)
Quarter: 2023Q4

REPORT INFORMATION
  Report Type: Other
  Country: None (occurrence: IN)
  Receive Date: 20231031
  Receipt Date: 20231031
  Transmission Date: 20240110
  Serious: Yes (Other)
  Sender: FDA-Public Use
  Company Number: IN-ACI HealthCare Limited-2147553

PATIENT
  Age: 30 Year
  Sex: Male

DRUGS (2)
  1. TRAMADOL HYDROCHLORIDE [Suspect]
     Active Substance: TRAMADOL HYDROCHLORIDE
     Indication: Substance abuse
     Route: 065
  2. PREGABALIN [Suspect]
     Active Substance: PREGABALIN
     Route: 065

REACTIONS (18)
  - Generalised tonic-clonic seizure [Recovered/Resolved]
  - Drug withdrawal syndrome [Unknown]
  - Foaming at mouth [Unknown]
  - Fall [Unknown]
  - Tongue biting [Unknown]
  - Lethargy [Unknown]
  - Depressed mood [Unknown]
  - Fatigue [Unknown]
  - Somnolence [Unknown]
  - Decreased appetite [Unknown]
  - Drug dependence [Unknown]
  - Drug abuse [Unknown]
  - Yawning [Unknown]
  - Restlessness [Unknown]
  - Pain [Unknown]
  - Anxiety [Unknown]
  - Intentional overdose [Unknown]
  - Product use in unapproved indication [Unknown]
